FAERS Safety Report 9034951 (Version 1)
Quarter: 2013Q1

REPORT INFORMATION
  Report Type: Spontaneous
  Country: PL (occurrence: None)
  Receive Date: 20130115
  Receipt Date: 20130115
  Transmission Date: 20140127
  Serious: Yes (Other)
  Sender: FDA-Public Use
  Company Number: 2012-13259

PATIENT
  Age: 28 Year
  Sex: Female

DRUGS (1)
  1. ZOLPIDEM TARTRATE (UNKNOWN) (ZOLPIDEM TARTRATE) UNK, UNKUNK [Suspect]
     Indication: INITIAL INSOMNIA
     Dosage: 1-2 TIMES PER WEEK

REACTIONS (5)
  - Hallucination, visual [None]
  - Intentional drug misuse [None]
  - Diplopia [None]
  - Agitation [None]
  - Logorrhoea [None]
